FAERS Safety Report 6332683-3 (Version None)
Quarter: 2009Q3

REPORT INFORMATION
  Report Type: 
  Country: None (occurrence: None)
  Receive Date: 20090828
  Receipt Date: 20090827
  Transmission Date: 20100115
  Serious: Yes (Other)
  Sender: FDA-Public Use
  Company Number: US-MYLANLABS-2009S1014727

PATIENT
  Age: 21 Year
  Sex: Female

DRUGS (3)
  1. NUVIGIL [Suspect]
     Route: 048
  2. SELEGILINE [Suspect]
     Indication: NARCOLEPSY
     Route: 048
     Dates: start: 20090717, end: 20090722
  3. ALLEGRA [Concomitant]

REACTIONS (1)
  - STEVENS-JOHNSON SYNDROME [None]
